FAERS Safety Report 15767342 (Version 13)
Quarter: 2019Q3

REPORT INFORMATION
  Report Type: Report from Study
  Country: US (occurrence: US)
  Receive Date: 20181227
  Receipt Date: 20190920
  Transmission Date: 20191004
  Serious: Yes (Life-Threatening, Hospitalization)
  Sender: FDA-Public Use
  Company Number: US-ACTELION-A-NJ2018-179581

PATIENT
  Age: 65 Year
  Sex: Female

DRUGS (23)
  1. LASIX [Concomitant]
     Active Substance: FUROSEMIDE
     Dosage: 40 MG, BID
     Dates: start: 2017
  2. TRAMADOL. [Concomitant]
     Active Substance: TRAMADOL
     Dosage: 1000 MG, 1 TAB IN THE AM, 2 TABS IN THE AFTERNOON AND 1 TABL AT NIGHT
  3. TRAMADOL. [Concomitant]
     Active Substance: TRAMADOL
     Dosage: 50 UNK, UNK
  4. TYLENOL [Concomitant]
     Active Substance: ACETAMINOPHEN
     Dosage: 500 MG, BID
  5. IRON [Concomitant]
     Active Substance: IRON
     Dosage: 325 MG, QD
     Dates: start: 2013
  6. EFFEXOR [Concomitant]
     Active Substance: VENLAFAXINE HYDROCHLORIDE
     Dosage: 75 MG, QD
  7. DILTIAZEM. [Concomitant]
     Active Substance: DILTIAZEM
  8. SILDENAFIL. [Suspect]
     Active Substance: SILDENAFIL
     Indication: PRODUCT USED FOR UNKNOWN INDICATION
     Dosage: 20 MG, TID
     Route: 065
     Dates: start: 20180905
  9. ASPIRIN. [Concomitant]
     Active Substance: ASPIRIN
     Dosage: 81 MG, BID
     Dates: start: 201806
  10. OPSUMIT [Suspect]
     Active Substance: MACITENTAN
     Indication: PULMONARY ARTERIAL HYPERTENSION
     Dosage: 10 MG, QD
     Route: 048
     Dates: start: 20180908, end: 20190911
  11. BUPROPION. [Concomitant]
     Active Substance: BUPROPION
     Dosage: 300 MG, QD
  12. CALCIUM CARBONATE/VITAMIN D3 [Concomitant]
     Active Substance: CALCIUM CARBONATE\CHOLECALCIFEROL
     Dosage: 600 IU, QD
  13. MULTIVITAMIN [Concomitant]
     Active Substance: VITAMINS
     Dosage: UNK, QD
     Dates: start: 2002
  14. VITAMIN D3 [Concomitant]
     Active Substance: CHOLECALCIFEROL
     Dosage: 1000 IU, QD
  15. VITAMIN K [Concomitant]
     Active Substance: PHYTONADIONE
     Dosage: UNK
  16. REMODULIN [Suspect]
     Active Substance: TREPROSTINIL
     Indication: PRODUCT USED FOR UNKNOWN INDICATION
     Route: 042
  17. TYLENOL [Concomitant]
     Active Substance: ACETAMINOPHEN
     Dosage: 650 MG, UNK
  18. ATORVASTATIN [Concomitant]
     Active Substance: ATORVASTATIN
     Dosage: 10 MG, QD
  19. POTASSIUM CHLORIDE. [Concomitant]
     Active Substance: POTASSIUM CHLORIDE
     Dosage: 10 MEQ, BID
     Dates: start: 2017
  20. LOVENOX [Concomitant]
     Active Substance: ENOXAPARIN SODIUM
     Dosage: 40 MG, UNK
  21. LEVOTHYROXINE. [Concomitant]
     Active Substance: LEVOTHYROXINE
     Dosage: 150 MG, QD
     Dates: start: 2002
  22. DIGOXIN. [Concomitant]
     Active Substance: DIGOXIN
  23. OMEPRAZOLE. [Concomitant]
     Active Substance: OMEPRAZOLE
     Dosage: 20 MG, QD

REACTIONS (70)
  - Tachycardia [Unknown]
  - Pulmonary oedema [Unknown]
  - Catheter placement [Not Recovered/Not Resolved]
  - Pulmonary arterial hypertension [Unknown]
  - Condition aggravated [Unknown]
  - Cardiac failure congestive [Unknown]
  - Haemorrhage [Unknown]
  - Atrial flutter [Not Recovered/Not Resolved]
  - Hypertension [Unknown]
  - Right atrial enlargement [Unknown]
  - Arthralgia [Unknown]
  - Interstitial lung disease [Unknown]
  - Pain in extremity [Unknown]
  - Oedema peripheral [Unknown]
  - Disease complication [Unknown]
  - Red blood cell count decreased [Unknown]
  - Depression [Unknown]
  - Muscle atrophy [Unknown]
  - Gastrointestinal haemorrhage [Unknown]
  - Tricuspid valve incompetence [Unknown]
  - Nausea [Unknown]
  - Atrial pressure increased [Unknown]
  - Rales [Unknown]
  - Oedema [Unknown]
  - Peripheral swelling [Unknown]
  - Acute kidney injury [Unknown]
  - Mitral valve incompetence [Unknown]
  - Vomiting [Unknown]
  - Cardiomegaly [Unknown]
  - Dyspnoea exertional [Unknown]
  - Orthopnoea [Unknown]
  - Haemoglobin decreased [Unknown]
  - Right ventricular failure [Unknown]
  - Cardiac arrest [Recovered/Resolved]
  - Feeling abnormal [Not Recovered/Not Resolved]
  - Right ventricular dilatation [Unknown]
  - Pain in jaw [Unknown]
  - Diarrhoea [Unknown]
  - Drug tolerance [Unknown]
  - Treatment noncompliance [Unknown]
  - Scleroderma [Unknown]
  - Left ventricular failure [Unknown]
  - Pulmonary arterial pressure increased [Unknown]
  - Haematocrit decreased [Unknown]
  - Cachexia [Unknown]
  - Sinus arrest [Recovering/Resolving]
  - Cardiogenic shock [Unknown]
  - Blood albumin decreased [Unknown]
  - Weight increased [Unknown]
  - Pleural effusion [Unknown]
  - Bradycardia [Recovered/Resolved]
  - Cardiac pacemaker insertion [Unknown]
  - Heart rate increased [Unknown]
  - Myalgia [Unknown]
  - Oxygen consumption increased [Unknown]
  - Dyspnoea [Unknown]
  - Swelling [Unknown]
  - Therapy non-responder [Not Recovered/Not Resolved]
  - Pericardial effusion [Unknown]
  - Headache [Unknown]
  - Influenza like illness [Unknown]
  - Dizziness [Unknown]
  - Pleural thickening [Unknown]
  - Cardiac failure acute [Unknown]
  - Hypovolaemia [Unknown]
  - Ventricular hypokinesia [Unknown]
  - Weight decreased [Unknown]
  - Back pain [Unknown]
  - Pain [Unknown]
  - Asthenia [Unknown]

NARRATIVE: CASE EVENT DATE: 201809
